FAERS Safety Report 6172334-4 (Version None)
Quarter: 2009Q2

REPORT INFORMATION
  Report Type: 
  Country: None (occurrence: None)
  Receive Date: 20090429
  Receipt Date: 20090424
  Transmission Date: 20091009
  Serious: Yes (Death, Life-Threatening, Hospitalization, Other)
  Sender: FDA-Public Use
  Company Number: DE-WYE-G03326309

PATIENT
  Age: 72 Year
  Sex: Male
  Weight: 100 kg

DRUGS (10)
  1. TYGACIL [Suspect]
     Indication: ABDOMINAL INFECTION
     Route: 042
     Dates: start: 20080923, end: 20080923
  2. TYGACIL [Suspect]
     Route: 042
     Dates: start: 20080924, end: 20081013
  3. NOREPINEPHRINE [Concomitant]
  4. DOBUTAMINE HCL [Concomitant]
  5. MERONEM [Concomitant]
     Route: 042
     Dates: start: 20081001
  6. HYDROCORTISONE [Concomitant]
  7. TAZOBAC [Concomitant]
     Route: 042
     Dates: start: 20080920, end: 20080923
  8. ECALTA [Concomitant]
     Dates: start: 20080923
  9. HEPARIN [Concomitant]
  10. SELENASE [Concomitant]

REACTIONS (3)
  - FAILURE TO ANASTOMOSE [None]
  - MULTI-ORGAN FAILURE [None]
  - PATHOGEN RESISTANCE [None]
